FAERS Safety Report 7903111-9 (Version None)
Quarter: 2011Q4

REPORT INFORMATION
  Report Type: 
  Country: None (occurrence: None)
  Receive Date: 20111108
  Receipt Date: 20111108
  Transmission Date: 20120403
  Serious: No
  Sender: FDA-Public Use
  Company Number: None

PATIENT
  Sex: Male
  Weight: 71 kg

DRUGS (12)
  1. LORAZEPAM [Concomitant]
  2. OMEPRAZOLE [Concomitant]
  3. CISPLATIN [Suspect]
     Dosage: 58 MG
  4. ACETAMINOPHEN [Concomitant]
  5. AREPITANT [Concomitant]
  6. ASPIRIN [Concomitant]
  7. CHLORPHENIRAMINE-PSE-IBUPROFEN [Concomitant]
  8. PROMETHAZINE [Concomitant]
  9. DEXAMETHASONE [Concomitant]
  10. IRINOTECAN HCL [Suspect]
     Dosage: 100 MG
  11. LOPERAMIDE HCL [Concomitant]
  12. PROCHLORPERAZINE [Concomitant]

REACTIONS (5)
  - ANAEMIA [None]
  - LEUKOPENIA [None]
  - THROMBOCYTOPENIA [None]
  - NEUTROPENIA [None]
  - LYMPHOPENIA [None]
